FAERS Safety Report 22593026 (Version 2)
Quarter: 2023Q2

REPORT INFORMATION
  Report Type: Spontaneous
  Country: HR (occurrence: HR)
  Receive Date: 20230613
  Receipt Date: 20230626
  Transmission Date: 20230722
  Serious: Yes (Other)
  Sender: FDA-Public Use
  Company Number: HR-BAXTER-2023BAX023611

PATIENT
  Sex: Female

DRUGS (5)
  1. CYCLOPHOSPHAMIDE [Suspect]
     Active Substance: CYCLOPHOSPHAMIDE
     Indication: Non-Hodgkin^s lymphoma
     Dosage: EURO-LB 02 PROTOCOL
     Route: 065
  2. CYCLOPHOSPHAMIDE [Suspect]
     Active Substance: CYCLOPHOSPHAMIDE
     Dosage: RESUMED (EURO-LB 02 PROTOCOL) WITHOUT DELAYING AND MODIFYING THE DOSE OF CYTOSTATICS, WITH SUPPORTIV
     Route: 065
  3. PREDNISONE [Suspect]
     Active Substance: PREDNISONE
     Indication: Non-Hodgkin^s lymphoma
     Dosage: EURO-LB 02 PROTOCOL
     Route: 065
  4. PREDNISONE [Suspect]
     Active Substance: PREDNISONE
     Dosage: RESUMED (EURO-LB 02 PROTOCOL) WITHOUT DELAYING AND MODIFYING THE DOSE OF CYTOSTATICS, WITH SUPPORTIV
     Route: 065
  5. ALLOPURINOL [Concomitant]
     Active Substance: ALLOPURINOL
     Indication: Prophylaxis
     Route: 065

REACTIONS (1)
  - Osteonecrosis [Unknown]
